FAERS Safety Report 4517729-7 (Version None)
Quarter: 2004Q4

REPORT INFORMATION
  Report Type: 
  Country: None (occurrence: None)
  Receive Date: 20041203
  Receipt Date: 20041122
  Transmission Date: 20050328
  Serious: Yes (Other)
  Sender: FDA-Public Use
  Company Number: PHBS2004CN15730

PATIENT
  Age: 67 Year
  Sex: Female

DRUGS (3)
  1. FEMARA [Suspect]
     Indication: BREAST CANCER FEMALE
     Dosage: 2.5 MG/D
     Route: 048
     Dates: start: 20030901, end: 20031101
  2. FEMARA [Suspect]
     Dosage: 2.5 MG/D
     Route: 048
     Dates: start: 20040326
  3. RADIOTHERAPY [Suspect]
     Dates: start: 20030901, end: 20031101

REACTIONS (5)
  - ARTHRALGIA [None]
  - DYSPNOEA [None]
  - PAIN IN EXTREMITY [None]
  - PNEUMONITIS [None]
  - RADIATION PNEUMONITIS [None]
